FAERS Safety Report 15884613 (Version 1)
Quarter: 2019Q1

REPORT INFORMATION
  Report Type: Spontaneous
  Country: JP (occurrence: JP)
  Receive Date: 20190129
  Receipt Date: 20190129
  Transmission Date: 20190417
  Serious: Yes (Hospitalization)
  Sender: FDA-Public Use
  Company Number: JP-PFIZER INC-2019032167

PATIENT
  Age: 7 Decade
  Sex: Male

DRUGS (2)
  1. LASIX [Suspect]
     Active Substance: FUROSEMIDE
     Indication: ASCITES
     Dosage: 20 MG, UNK
  2. ALDACTONE A [Suspect]
     Active Substance: SPIRONOLACTONE
     Indication: ASCITES
     Dosage: 50 MG, UNK

REACTIONS (2)
  - Hepatic encephalopathy [Recovering/Resolving]
  - Dehydration [Unknown]
